FAERS Safety Report 4642160-3 (Version None)
Quarter: 2005Q2

REPORT INFORMATION
  Report Type: 
  Country: None (occurrence: None)
  Receive Date: 20050420
  Receipt Date: 20050414
  Transmission Date: 20051028
  Serious: Yes (Death)
  Sender: FDA-Public Use
  Company Number: 2005AP02234

PATIENT
  Age: 62 Year
  Sex: Male

DRUGS (2)
  1. ZOLADEX [Suspect]
     Indication: PROSTATE CANCER
  2. LEUPLIN [Suspect]
     Indication: PROSTATE CANCER

REACTIONS (1)
  - RENAL CELL CARCINOMA STAGE UNSPECIFIED [None]
